FAERS Safety Report 4431131-8 (Version None)
Quarter: 2004Q3

REPORT INFORMATION
  Report Type: 
  Country: None (occurrence: None)
  Receive Date: 20040823
  Receipt Date: 20040823
  Transmission Date: 20050211
  Serious: Yes (Life-Threatening, Hospitalization)
  Sender: FDA-Public Use
  Company Number: None

PATIENT
  Age: 71 Year
  Sex: Female
  Weight: 83.0083 kg

DRUGS (1)
  1. CEFOTETAN [Suspect]
     Indication: SKIN ULCER
     Dosage: 1 GRAM Q 12 HRS INTRAVENOUS
     Route: 042
     Dates: start: 20040611, end: 20040616

REACTIONS (10)
  - ASTHENIA [None]
  - BLOOD BILIRUBIN INCREASED [None]
  - BODY TEMPERATURE INCREASED [None]
  - CONFUSIONAL STATE [None]
  - COOMBS TEST POSITIVE [None]
  - DYSPNOEA [None]
  - FATIGUE [None]
  - FEELING ABNORMAL [None]
  - HAEMOGLOBIN DECREASED [None]
  - JAUNDICE [None]
